FAERS Safety Report 19950561 (Version 3)
Quarter: 2022Q2

REPORT INFORMATION
  Report Type: Report from Study
  Country: MX (occurrence: MX)
  Receive Date: 20211013
  Receipt Date: 20220425
  Transmission Date: 20220721
  Serious: Yes (Other)
  Sender: FDA-Public Use
  Company Number: MX-BAYER-2021A228815

PATIENT
  Age: 64 Year
  Sex: Male

DRUGS (5)
  1. STIVARGA [Suspect]
     Active Substance: REGORAFENIB
     Indication: Hepatocellular carcinoma
     Dosage: 120 MG, QD (TO BE TAKEN 3 WEEKS WITH 1 WEEK OFF)
     Route: 048
     Dates: start: 20210809
  2. LOPERAMIDE [Concomitant]
     Active Substance: LOPERAMIDE
     Indication: Diarrhoea
     Dosage: 2 MG EVERY 8 HOURS
     Dates: start: 202109
  3. SENNOSIDES [Concomitant]
     Active Substance: SENNOSIDES
     Indication: Constipation
     Dosage: 2 TABLETS ORALLY/12 HOURS
     Dates: start: 202109
  4. BUPRENORPHINE [Concomitant]
     Active Substance: BUPRENORPHINE
     Dosage: 35 MICROGRAMS EVERY 4 DAYS AS NEEDED
     Dates: start: 202109
  5. CHLORINE DIOXIDE [Concomitant]
     Active Substance: CHLORINE DIOXIDE
     Indication: COVID-19
     Dosage: 10 ML EVERY HOUR (TAKEN 10 TIMES A DAY)

REACTIONS (4)
  - Alpha 1 foetoprotein decreased [Recovering/Resolving]
  - Alpha 1 foetoprotein increased [Not Recovered/Not Resolved]
  - Blood pressure increased [Recovering/Resolving]
  - Hypertension [Not Recovered/Not Resolved]

NARRATIVE: CASE EVENT DATE: 20211006
